FAERS Safety Report 12550115 (Version 1)
Quarter: 2016Q3

REPORT INFORMATION
  Report Type: Spontaneous
  Country: US (occurrence: US)
  Receive Date: 20160712
  Receipt Date: 20160712
  Transmission Date: 20161109
  Serious: Yes (Hospitalization, Other)
  Sender: FDA-Public Use
  Company Number: US-MYLANLABS-2016M1028775

PATIENT

DRUGS (1)
  1. ACEBUTOLOL [Suspect]
     Active Substance: ACEBUTOLOL
     Indication: ARRHYTHMIA
     Dosage: UNK
     Route: 048
     Dates: start: 2016

REACTIONS (4)
  - Arrhythmia [Unknown]
  - Reaction to drug excipients [Unknown]
  - Drug ineffective [Unknown]
  - Hypersensitivity [Unknown]
